FAERS Safety Report 5860123-7 (Version None)
Quarter: 2008Q3

REPORT INFORMATION
  Report Type: 
  Country: None (occurrence: None)
  Receive Date: 20080827
  Receipt Date: 20080815
  Transmission Date: 20090109
  Serious: Yes (Other)
  Sender: FDA-Public Use
  Company Number: US-PFIZER INC-2008069175

PATIENT
  Sex: Male

DRUGS (3)
  1. LYRICA [Suspect]
  2. GABAPENTIN [Suspect]
  3. ALL OTHER THERAPEUTIC PRODUCTS [Concomitant]

REACTIONS (3)
  - DIZZINESS [None]
  - FALL [None]
  - JOINT SPRAIN [None]
